FAERS Safety Report 10844869 (Version 3)
Quarter: 2015Q1

REPORT INFORMATION
  Report Type: Spontaneous
  Country: TW (occurrence: TW)
  Receive Date: 20150220
  Receipt Date: 20150325
  Transmission Date: 20150721
  Serious: Yes (Death, Hospitalization, Other)
  Sender: FDA-Public Use
  Company Number: TW-ACTELION-A-CH2015-112947

PATIENT
  Age: 48 Year
  Sex: Female

DRUGS (9)
  1. OPSUMIT [Suspect]
     Active Substance: MACITENTAN
     Indication: PULMONARY ARTERIAL HYPERTENSION
     Dosage: 10 MG, OD
     Route: 048
     Dates: end: 20150318
  2. EXELDERM [Concomitant]
     Active Substance: SULCONAZOLE NITRATE
     Route: 061
  3. COMPESOLON [Concomitant]
     Dosage: 10 MG, QD
     Route: 048
  4. ALDACTIN [Concomitant]
     Dosage: 25 UNK, BID
  5. SILDENAFIL. [Concomitant]
     Active Substance: SILDENAFIL
     Indication: PULMONARY ARTERIAL HYPERTENSION
     Dosage: 20 MG, TID
     Route: 048
  6. LANOXIN [Suspect]
     Active Substance: DIGOXIN
     Indication: PRODUCT USED FOR UNKNOWN INDICATION
     Dosage: UNK, BID
     Route: 048
  7. SEDATIVUM [Suspect]
     Active Substance: DIPHENHYDRAMINE HYDROCHLORIDE
     Indication: PRODUCT USED FOR UNKNOWN INDICATION
     Route: 065
  8. REMODULIN [Concomitant]
     Active Substance: TREPROSTINIL
     Indication: PULMONARY ARTERIAL HYPERTENSION
  9. BOKEY [Concomitant]
     Dosage: 100 MG, QD
     Route: 048

REACTIONS (12)
  - Cardioactive drug level increased [Fatal]
  - Hypotension [Fatal]
  - Loss of consciousness [Recovered/Resolved]
  - Multi-organ failure [Fatal]
  - Pyrexia [Recovered/Resolved]
  - Oxygen saturation decreased [Recovered/Resolved]
  - Pleural effusion [Recovered/Resolved]
  - Somnolence [Unknown]
  - Drug metabolising enzyme decreased [Fatal]
  - Pneumonia [Recovered/Resolved]
  - Acute kidney injury [Fatal]
  - Bradycardia [Fatal]

NARRATIVE: CASE EVENT DATE: 20150212
